FAERS Safety Report 17554812 (Version 1)
Quarter: 2020Q1

REPORT INFORMATION
  Report Type: Spontaneous
  Country: JP (occurrence: JP)
  Receive Date: 20200318
  Receipt Date: 20200318
  Transmission Date: 20200409
  Serious: Yes (Hospitalization, Other)
  Sender: FDA-Public Use
  Company Number: JP-GLAXOSMITHKLINE-JP2020044535

PATIENT
  Age: 77 Year
  Sex: Male

DRUGS (20)
  1. SEISHOKU [Concomitant]
     Active Substance: SODIUM CHLORIDE
     Dosage: 640 ML
     Route: 065
     Dates: start: 20200210, end: 20200210
  2. MAGMITT [Concomitant]
     Active Substance: MAGNESIUM OXIDE
     Dosage: 990 MG
     Route: 048
     Dates: start: 20200218, end: 20200220
  3. CYTOTEC [Concomitant]
     Active Substance: MISOPROSTOL
     Indication: PRODUCT USED FOR UNKNOWN INDICATION
     Dosage: 200 UG, BID
     Route: 048
     Dates: start: 20200208, end: 20200208
  4. PL [Concomitant]
     Active Substance: ACETAMINOPHEN\CAFFEINE\PROMETHAZINE\SALICYLAMIDE
     Dosage: 80 ML
     Route: 065
     Dates: start: 20200211, end: 20200211
  5. SOLDEM 1 [Concomitant]
     Active Substance: DEXTROSE\SODIUM CHLORIDE\SODIUM LACTATE
     Indication: PRODUCT USED FOR UNKNOWN INDICATION
     Dosage: 500 ML
     Route: 065
     Dates: start: 20200208, end: 20200208
  6. MECOBALAMIN [Concomitant]
     Active Substance: METHYLCOBALAMIN
     Indication: PRODUCT USED FOR UNKNOWN INDICATION
     Dosage: 1500 UG
     Route: 048
  7. CYTOTEC [Concomitant]
     Active Substance: MISOPROSTOL
     Dosage: 400 UG, BID
     Route: 048
     Dates: start: 20200209, end: 20200210
  8. MUCOSTA [Concomitant]
     Active Substance: REBAMIPIDE
     Indication: PRODUCT USED FOR UNKNOWN INDICATION
     Dosage: 100 MG, QD
     Route: 048
     Dates: start: 20200208, end: 20200208
  9. SOLDEM 1 [Concomitant]
     Active Substance: DEXTROSE\SODIUM CHLORIDE\SODIUM LACTATE
     Dosage: 1500 ML
     Route: 065
     Dates: start: 20200209, end: 20200210
  10. SOLDEM 1 [Concomitant]
     Active Substance: DEXTROSE\SODIUM CHLORIDE\SODIUM LACTATE
     Dosage: 1000 ML
     Route: 065
     Dates: start: 20200211, end: 20200211
  11. SEISHOKU [Concomitant]
     Active Substance: SODIUM CHLORIDE
     Dosage: 140 ML
     Route: 065
     Dates: start: 20200209, end: 20200209
  12. PL [Concomitant]
     Active Substance: ACETAMINOPHEN\CAFFEINE\PROMETHAZINE\SALICYLAMIDE
     Dosage: 120 ML
     Route: 065
     Dates: start: 20200209, end: 20200210
  13. LYRICA [Concomitant]
     Active Substance: PREGABALIN
     Indication: PRODUCT USED FOR UNKNOWN INDICATION
     Dosage: UNK
     Route: 048
  14. VOLTAREN [Suspect]
     Active Substance: DICLOFENAC SODIUM
     Indication: BACK PAIN
     Dosage: 1 DF, BID
     Route: 048
     Dates: end: 20200208
  15. MAGMITT [Concomitant]
     Active Substance: MAGNESIUM OXIDE
     Indication: PRODUCT USED FOR UNKNOWN INDICATION
     Dosage: UNK
     Route: 048
  16. MUCOSTA [Concomitant]
     Active Substance: REBAMIPIDE
     Dosage: 300 MG, QD
     Route: 048
     Dates: start: 20200209, end: 20200210
  17. SOLULACT [Concomitant]
     Indication: PRODUCT USED FOR UNKNOWN INDICATION
     Dosage: 500 ML
     Route: 065
     Dates: start: 20200208, end: 20200208
  18. PL [Concomitant]
     Active Substance: ACETAMINOPHEN\CAFFEINE\PROMETHAZINE\SALICYLAMIDE
     Indication: PRODUCT USED FOR UNKNOWN INDICATION
     Dosage: 40 ML
     Route: 065
     Dates: start: 20200208, end: 20200208
  19. SEISHOKU [Concomitant]
     Active Substance: SODIUM CHLORIDE
     Indication: PRODUCT USED FOR UNKNOWN INDICATION
     Dosage: 1140 ML
     Route: 065
     Dates: start: 20200208, end: 20200208
  20. LYRICA [Concomitant]
     Active Substance: PREGABALIN
     Dosage: 75 MG
     Route: 048
     Dates: start: 20200218, end: 20200220

REACTIONS (1)
  - Melaena [Recovering/Resolving]

NARRATIVE: CASE EVENT DATE: 20200208
